FAERS Safety Report 5526850-6 (Version None)
Quarter: 2007Q4

REPORT INFORMATION
  Report Type: 
  Country: None (occurrence: None)
  Receive Date: 20071127
  Receipt Date: 20071120
  Transmission Date: 20080405
  Serious: Yes (Hospitalization)
  Sender: FDA-Public Use
  Company Number: FR-ASTRAZENECA-2007CG01651

PATIENT
  Sex: Male

DRUGS (2)
  1. RHINOCORT [Suspect]
     Route: 045
     Dates: start: 20020101
  2. TAHOR [Concomitant]

REACTIONS (1)
  - STRABISMUS [None]
